FAERS Safety Report 9321916 (Version 3)
Quarter: 2013Q3

REPORT INFORMATION
  Report Type: Spontaneous
  Country: JP (occurrence: JP)
  Receive Date: 20130531
  Receipt Date: 20130828
  Transmission Date: 20140515
  Serious: Yes (Death)
  Sender: FDA-Public Use
  Company Number: JP-PFIZER INC-2013162217

PATIENT
  Age: 81 Year
  Sex: Female
  Weight: 39 kg

DRUGS (25)
  1. PROPOFOL [Concomitant]
     Dosage: 5-10 ML/H FOR 24 HOURS
     Route: 042
     Dates: start: 20130514, end: 20130516
  2. FENTANYL [Concomitant]
     Indication: ANALGESIC THERAPY
     Dosage: 0.025-0.05 MG/H FOR 24 HOURS
     Route: 042
     Dates: start: 20130506, end: 20130508
  3. FENTANYL [Concomitant]
     Indication: SEDATION
     Dosage: 0.025-0.05 MG/H FOR 24 HOURS
     Route: 042
     Dates: start: 20130513, end: 20130517
  4. PRECEDEX [Concomitant]
     Indication: SEDATION
     Dosage: 12-28 UG/H FOR 24 HOURS
     Route: 042
     Dates: start: 20130506, end: 20130517
  5. KETALAR [Concomitant]
     Indication: ANALGESIC THERAPY
     Dosage: 20-40 MG/H FOR 24 HOURS
     Route: 042
     Dates: start: 20130508, end: 20130513
  6. DORMICUM FOR INJECTION [Concomitant]
     Indication: SEDATION
     Dosage: 2-4 MG/H FOR 24 HOURS
     Route: 042
     Dates: start: 20130512, end: 20130513
  7. KAKODIN [Concomitant]
     Indication: HYPOTENSION
     Dosage: 3-9 MG/H FOR 24 HOURS
     Route: 042
     Dates: start: 20130508, end: 20130513
  8. NORADRENALINE [Concomitant]
     Indication: HYPOTENSION
     Dosage: 0.15 MG/H FOR 24 HOURS
     Route: 042
     Dates: start: 20130513, end: 20130516
  9. LASIX [Concomitant]
     Indication: POLYURIA
     Dosage: 20 MG, 3X/DAY
     Route: 042
     Dates: start: 20130511, end: 20130511
  10. SOLU-CORTEF [Concomitant]
     Indication: STEROID THERAPY
     Dosage: 100 MG, 1X/DAY
     Route: 042
     Dates: start: 20130515, end: 20130515
  11. FUTHAN [Concomitant]
     Indication: ANTICOAGULANT THERAPY
     Dosage: 25 MG/H FOR 24 HOURS
     Dates: start: 20130513, end: 20130517
  12. BIOFERMIN R [Concomitant]
     Indication: DYSBACTERIOSIS
     Dosage: 1 G, 3X/DAY
     Route: 045
     Dates: start: 20130506, end: 20130517
  13. RECOMODULIN [Concomitant]
     Indication: DISSEMINATED INTRAVASCULAR COAGULATION
     Dosage: 7040 (UNITS UNKNOWN) ONCE DAILY
     Route: 042
     Dates: start: 20130513, end: 20130516
  14. ZYVOX [Suspect]
     Indication: INFECTION
     Dosage: 600 MG, 2X/DAY
     Route: 041
     Dates: start: 20130513, end: 20130516
  15. MEROPEN [Suspect]
     Indication: INFECTION
     Dosage: 1 G, 2X/DAY
     Route: 042
     Dates: start: 20130512, end: 20130516
  16. RASENAZOLIN [Concomitant]
     Indication: INFECTION PROPHYLAXIS
     Dosage: 1 G, 2X/DAY
     Route: 042
     Dates: start: 20130506, end: 20130508
  17. OMEPRAL [Concomitant]
     Indication: PROPHYLAXIS AGAINST GASTROINTESTINAL ULCER
     Dosage: 20 MG, 2X/DAY
     Route: 042
     Dates: start: 20130506, end: 20130517
  18. OMEPRAL [Concomitant]
     Indication: PROPHYLAXIS
  19. PRIMPERAN [Concomitant]
     Indication: GASTROINTESTINAL HYPOMOTILITY
     Dosage: 10 MG, 3X/DAY
     Route: 042
     Dates: start: 20130507, end: 20130512
  20. CEFTAZIDIME [Concomitant]
     Indication: INFECTION
     Dosage: 1 G, 4X/DAY
     Route: 042
     Dates: start: 20130508, end: 20130512
  21. FUNGUARD [Concomitant]
     Indication: INFECTION
     Dosage: 100 MG, 1X/DAY
     Route: 042
     Dates: start: 20130513, end: 20130516
  22. VENILON [Concomitant]
     Indication: IMMUNOGLOBULIN THERAPY
     Dosage: 5 G, 1X/DAY
     Route: 042
     Dates: start: 20130513, end: 20130515
  23. ADONA [Concomitant]
     Indication: HAEMOSTASIS
     Dosage: 100 MG, 1X/DAY
     Route: 042
     Dates: start: 20130514, end: 20130514
  24. TRANSAMIN [Concomitant]
     Indication: HAEMOSTASIS
     Dosage: 1000 MG, 1X/DAY
     Route: 042
     Dates: start: 20130514, end: 20130514
  25. PROPOFOL [Concomitant]
     Indication: SEDATION
     Dosage: 5-20 ML/H FOR 24 HOURS
     Route: 042
     Dates: start: 20130507, end: 20130512

REACTIONS (2)
  - Lactic acidosis [Fatal]
  - Hepatic failure [Fatal]
